FAERS Safety Report 9639740 (Version 1)
Quarter: 2013Q4

REPORT INFORMATION
  Report Type: Spontaneous
  Country: US (occurrence: None)
  Receive Date: 20131021
  Receipt Date: 20131021
  Transmission Date: 20140711
  Serious: No
  Sender: FDA-Public Use
  Company Number: None

PATIENT
  Age: 24 Year
  Sex: Female
  Weight: 79.38 kg

DRUGS (1)
  1. METHYLPHENIDATE ER 54MG MALLINCKRODT [Suspect]
     Indication: ATTENTION DEFICIT/HYPERACTIVITY DISORDER
     Dosage: ONE PILL ONCE DAILY TAKEN BY MOUTH
     Route: 048
     Dates: start: 20131011, end: 20131110

REACTIONS (5)
  - Drug effect decreased [None]
  - Disturbance in attention [None]
  - Migraine [None]
  - Feeling jittery [None]
  - Impulse-control disorder [None]
